FAERS Safety Report 14447252 (Version 5)
Quarter: 2019Q4

REPORT INFORMATION
  Report Type: Spontaneous
  Country: CA (occurrence: CA)
  Receive Date: 20180126
  Receipt Date: 20191223
  Transmission Date: 20200122
  Serious: Yes (Other)
  Sender: FDA-Public Use
  Company Number: CA-PFIZER INC-2018030103

PATIENT
  Age: 24 Year
  Sex: Female

DRUGS (25)
  1. DICLECTIN [Concomitant]
     Active Substance: DOXYLAMINE SUCCINATE\PYRIDOXINE HYDROCHLORIDE
     Dosage: 10 MG, UNK
     Route: 048
  2. PROLIA [Concomitant]
     Active Substance: DENOSUMAB
     Dosage: 60 MG/ML
  3. ATIVAN [Concomitant]
     Active Substance: LORAZEPAM
     Dosage: 1 MG, UNK
     Route: 048
  4. DOXEPIN [Concomitant]
     Active Substance: DOXEPIN
     Dosage: 75 MG, 1X/DAY
     Dates: start: 2015
  5. APO-TRAZODONE [Concomitant]
     Active Substance: TRAZODONE HYDROCHLORIDE
     Dosage: 100 MG, UNK
     Route: 048
  6. METHOTREXATE SODIUM. [Suspect]
     Active Substance: METHOTREXATE SODIUM
     Dosage: 25 MG (10 TABLETS OF 2.5 MG), WEEKLY
     Route: 048
     Dates: start: 1999
  7. SALAGEN [Concomitant]
     Active Substance: PILOCARPINE HYDROCHLORIDE
     Dosage: UNK
  8. PREDNISONE. [Concomitant]
     Active Substance: PREDNISONE
     Dosage: 5-20 MG, 1X/DAY
     Dates: start: 1999
  9. DILAUDID [Concomitant]
     Active Substance: HYDROMORPHONE HYDROCHLORIDE
     Dosage: 1 DF, 1X/DAY
     Route: 048
  10. FOLIC ACID. [Concomitant]
     Active Substance: FOLIC ACID
     Dosage: 5 MG, WEEKLY
     Route: 048
  11. INFLECTRA [Concomitant]
     Active Substance: INFLIXIMAB-DYYB
     Indication: RHEUMATOID ARTHRITIS
     Dosage: 189 MG, 189 MG 0, 2, 6 WEEKS, THEN EVERY 8 WEEKS
     Route: 042
     Dates: start: 20180201, end: 20180516
  12. HYDROMORPHONE [Concomitant]
     Active Substance: HYDROMORPHONE
     Dosage: 18 MG, 1X/DAY
     Route: 048
  13. ENBREL [Concomitant]
     Active Substance: ETANERCEPT
     Dosage: UNK
     Dates: end: 201712
  14. DILAUDID [Concomitant]
     Active Substance: HYDROMORPHONE HYDROCHLORIDE
     Dosage: 4-5 MG, 1X/DAY
     Route: 048
  15. PROLIA [Concomitant]
     Active Substance: DENOSUMAB
     Dosage: 30 MG/ML
  16. PANTOLOC /01263201/ [Concomitant]
     Active Substance: PANTOPRAZOLE SODIUM
     Dosage: 40 MG, 1X/DAY
     Route: 048
     Dates: start: 2009
  17. HYDROMORPH CONTIN [Concomitant]
     Active Substance: HYDROMORPHONE
     Dosage: 30 MG, UNK
     Route: 048
  18. INFLECTRA [Concomitant]
     Active Substance: INFLIXIMAB-DYYB
     Dosage: 315 MG EVERY 8 WEEKS
     Route: 042
     Dates: start: 20180711, end: 20180905
  19. VITAMIN D /00107901/ [Concomitant]
     Active Substance: ERGOCALCIFEROL
     Dosage: 50000 IU, WEEKLY
  20. INFLECTRA [Concomitant]
     Active Substance: INFLIXIMAB-DYYB
     Dosage: 315 MG EVERY 6 WEEKS
     Route: 042
     Dates: start: 20181029, end: 20191023
  21. PREDNISONE. [Concomitant]
     Active Substance: PREDNISONE
     Dosage: 1-20 MG, 1X/DAY
     Route: 048
     Dates: start: 1999
  22. DICLECTIN [Concomitant]
     Active Substance: DOXYLAMINE SUCCINATE\PYRIDOXINE HYDROCHLORIDE
     Dosage: 20 MG, 1X/DAY
     Route: 048
     Dates: start: 1999
  23. ONDANSETRON [Concomitant]
     Active Substance: ONDANSETRON
     Dosage: 4 MG, 3X/DAY
     Dates: start: 2016
  24. IMOVANE [Concomitant]
     Active Substance: ZOPICLONE
     Dosage: 7.5 MG, UNK
     Route: 048
  25. INFLECTRA [Concomitant]
     Active Substance: INFLIXIMAB-DYYB
     Dosage: 315 MG EVERY 6 WEEKS
     Route: 042
     Dates: start: 20191204

REACTIONS (14)
  - Impaired gastric emptying [Unknown]
  - Arthritis [Unknown]
  - Haematuria [Unknown]
  - Nephrolithiasis [Unknown]
  - Drug ineffective [Unknown]
  - Pain [Not Recovered/Not Resolved]
  - Osteoporosis [Unknown]
  - Deep vein thrombosis [Unknown]
  - Joint injury [Unknown]
  - Headache [Unknown]
  - Wound [Unknown]
  - Iritis [Unknown]
  - Kidney infection [Unknown]
  - Peripheral swelling [Unknown]

NARRATIVE: CASE EVENT DATE: 2006
